FAERS Safety Report 4401239-1 (Version None)
Quarter: 2004Q3

REPORT INFORMATION
  Report Type: 
  Country: None (occurrence: None)
  Receive Date: 20040907
  Receipt Date: 20040114
  Transmission Date: 20050211
  Serious: No
  Sender: FDA-Public Use
  Company Number: US-BRISTOL-MYERS SQUIBB COMPANY-12477998

PATIENT
  Sex: Male
  Weight: 73 kg

DRUGS (7)
  1. COUMADIN [Suspect]
     Indication: ARRHYTHMIA
     Route: 048
     Dates: start: 20031108
  2. EPOGEN [Concomitant]
  3. NIASPAN [Concomitant]
     Route: 048
  4. FOLTX [Concomitant]
     Route: 048
  5. FLOMAX [Concomitant]
     Route: 048
  6. SOTALOL HCL [Concomitant]
     Route: 048
  7. LIPITOR [Concomitant]
     Route: 048

REACTIONS (2)
  - HAEMORRHAGE SUBCUTANEOUS [None]
  - INJURY [None]
